FAERS Safety Report 9184242 (Version 1)
Quarter: 2013Q1

REPORT INFORMATION
  Report Type: Spontaneous
  Country: US (occurrence: US)
  Receive Date: 20130322
  Receipt Date: 20130322
  Transmission Date: 20140127
  Serious: No
  Sender: FDA-Public Use
  Company Number: US-BRISTOL-MYERS SQUIBB COMPANY-16471666

PATIENT
  Age: 60 Year
  Sex: Male
  Weight: 79.36 kg

DRUGS (1)
  1. ERBITUX SOLN FOR INF [Suspect]
     Indication: COLON CANCER STAGE IV
     Dates: start: 201112

REACTIONS (8)
  - Blister [Unknown]
  - Nail bed tenderness [Unknown]
  - Dry mouth [Unknown]
  - Palpitations [Unknown]
  - Nausea [Unknown]
  - Weight fluctuation [Unknown]
  - Dry skin [Unknown]
  - Skin disorder [Unknown]
